FAERS Safety Report 10160026 (Version 1)
Quarter: 2014Q2

REPORT INFORMATION
  Report Type: Spontaneous
  Country: US (occurrence: US)
  Receive Date: 20140508
  Receipt Date: 20140508
  Transmission Date: 20141212
  Serious: Yes (Hospitalization)
  Sender: FDA-Public Use
  Company Number: US-GLAXOSMITHKLINE-A1056411A

PATIENT
  Sex: Female

DRUGS (2)
  1. TYKERB [Suspect]
     Indication: BREAST CANCER
     Dosage: 250MG SIX TIMES PER DAY
     Route: 065
     Dates: start: 20131122, end: 201312
  2. BLOOD PRESSURE MEDICATION [Concomitant]

REACTIONS (2)
  - Vomiting [Recovered/Resolved]
  - Diarrhoea [Unknown]
